FAERS Safety Report 5962840-7 (Version None)
Quarter: 2008Q4

REPORT INFORMATION
  Report Type: 
  Country: None (occurrence: None)
  Receive Date: 20081124
  Receipt Date: 20081113
  Transmission Date: 20090506
  Serious: Yes (Other)
  Sender: FDA-Public Use
  Company Number: US-BAYER-200834677NA

PATIENT
  Age: 20 Year
  Sex: Female
  Weight: 49 kg

DRUGS (4)
  1. MIRENA [Suspect]
     Indication: CONTRACEPTION
     Route: 015
     Dates: start: 20070926, end: 20081112
  2. MIRENA [Suspect]
  3. COLACE [Concomitant]
     Indication: DRUG USE FOR UNKNOWN INDICATION
  4. PRECARE PREMIERE POST NATAL VITAMIN [Concomitant]
     Indication: MEDICAL DIET
     Route: 048
     Dates: start: 20070206

REACTIONS (5)
  - GENITAL HAEMORRHAGE [None]
  - IUCD COMPLICATION [None]
  - IUD MIGRATION [None]
  - VAGINAL DISCHARGE [None]
  - VAGINAL HAEMORRHAGE [None]
